FAERS Safety Report 5743002-5 (Version None)
Quarter: 2008Q2

REPORT INFORMATION
  Report Type: 
  Country: None (occurrence: None)
  Receive Date: 20080515
  Receipt Date: 20080515
  Transmission Date: 20081010
  Serious: Yes (Hospitalization)
  Sender: FDA-Public Use
  Company Number: None

PATIENT
  Age: 16 Year
  Sex: Female
  Weight: 61.6892 kg

DRUGS (1)
  1. ACCUTANE [Suspect]
     Indication: ACNE
     Dosage: 40MG DAILY PO
     Route: 048
     Dates: start: 20080101, end: 20080414

REACTIONS (12)
  - AFFECTIVE DISORDER [None]
  - ANGER [None]
  - CRYING [None]
  - DELUSION [None]
  - EXTRAPYRAMIDAL DISORDER [None]
  - FLIGHT OF IDEAS [None]
  - HALLUCINATIONS, MIXED [None]
  - NEGATIVE THOUGHTS [None]
  - POOR QUALITY SLEEP [None]
  - PSYCHOTIC DISORDER [None]
  - THOUGHT BLOCKING [None]
  - TINNITUS [None]
